FAERS Safety Report 26088297 (Version 1)
Quarter: 2025Q4

REPORT INFORMATION
  Report Type: Spontaneous
  Country: US (occurrence: US)
  Receive Date: 20251125
  Receipt Date: 20251125
  Transmission Date: 20260117
  Serious: No
  Sender: AMGEN
  Company Number: US-AMGEN-USASP2025231266

PATIENT
  Age: 78 Year
  Sex: Female

DRUGS (1)
  1. NEUPOGEN [Suspect]
     Active Substance: FILGRASTIM
     Indication: Neutrophil count decreased
     Dosage: UNK
     Route: 065
     Dates: start: 202510

REACTIONS (3)
  - Chest pain [Unknown]
  - Back pain [Unknown]
  - Bone pain [Unknown]

NARRATIVE: CASE EVENT DATE: 20251001
